FAERS Safety Report 6734178-1 (Version None)
Quarter: 2010Q2

REPORT INFORMATION
  Report Type: 
  Country: None (occurrence: None)
  Receive Date: 20100518
  Receipt Date: 20100505
  Transmission Date: 20101027
  Serious: Yes (Other)
  Sender: FDA-Public Use
  Company Number: 584967

PATIENT

DRUGS (7)
  1. VINCRISTINE SULFATE [Suspect]
     Indication: MENINGIOMA
  2. CARBOPLATIN [Suspect]
     Indication: MENINGIOMA
     Dosage: 500 MG/M2
  3. ETOPOSIDE [Suspect]
     Indication: MENINGIOMA
     Dosage: 250 MG/M2
  4. NEUPOGEN [Concomitant]
  5. ACYCLOVIR [Concomitant]
  6. FLUCONAZOLE [Concomitant]
  7. PENTAMIDINE ISETHIONATE [Concomitant]

REACTIONS (7)
  - BACTERAEMIA [None]
  - HAEMATOPOIETIC STEM CELL MOBILISATION [None]
  - HAEMATOTOXICITY [None]
  - MUCOSAL INFLAMMATION [None]
  - NEUTROPENIA [None]
  - PERIPHERAL BLOOD STEM CELL APHERESIS [None]
  - PYREXIA [None]
